FAERS Safety Report 8445226-5 (Version None)
Quarter: 2012Q2

REPORT INFORMATION
  Report Type: 
  Country: None (occurrence: None)
  Receive Date: 20120618
  Receipt Date: 20120612
  Transmission Date: 20120825
  Serious: Yes (Hospitalization)
  Sender: FDA-Public Use
  Company Number: HU-ROCHE-571111

PATIENT
  Sex: Female
  Weight: 51 kg

DRUGS (6)
  1. SPIRONOLACTONE [Concomitant]
     Dates: start: 20071220, end: 20080712
  2. XELODA [Suspect]
     Indication: COLORECTAL CANCER METASTATIC
     Dosage: PERMANENTLY DISCONTINUED ON 26 MAY 2008. FREQUENCY: 14 CALENDAR DAYS.
     Route: 048
     Dates: start: 20080118, end: 20080526
  3. VITAMIN D [Concomitant]
     Dosage: DOSE REPORTED AS 1000 NB DAILY DOSE=1000 UNIT
     Dates: start: 20040101, end: 20080712
  4. CARDILOPIN [Concomitant]
     Dates: start: 20071220, end: 20080712
  5. ZANTAC [Concomitant]
     Dates: start: 20071122, end: 20080712
  6. CORINFAR RETARD [Concomitant]
     Dates: start: 19790101, end: 20080712

REACTIONS (1)
  - ASCITES [None]
